FAERS Safety Report 16120471 (Version 2)
Quarter: 2019Q3

REPORT INFORMATION
  Report Type: Report from Study
  Country: None (occurrence: BR)
  Receive Date: 20190326
  Receipt Date: 20190724
  Transmission Date: 20191004
  Serious: Yes (Other)
  Sender: FDA-Public Use
  Company Number: BR-ABBVIE-18K-020-2219155-00

PATIENT
  Age: 38 Year
  Sex: Female
  Weight: 65 kg

DRUGS (4)
  1. PACO [Concomitant]
     Active Substance: ACETAMINOPHEN\CODEINE PHOSPHATE
     Indication: PAIN
  2. OXITRON [Concomitant]
     Indication: PAIN
  3. HUMIRA [Suspect]
     Active Substance: ADALIMUMAB
     Indication: ANKYLOSING SPONDYLITIS
     Route: 058
     Dates: start: 20170918, end: 201902
  4. ARCOXIA [Concomitant]
     Active Substance: ETORICOXIB
     Indication: PAIN

REACTIONS (10)
  - Dizziness [Recovering/Resolving]
  - Headache [Recovering/Resolving]
  - Spondylitis [Unknown]
  - Polyneuropathy [Unknown]
  - Muscle disorder [Recovering/Resolving]
  - Injection site pain [Unknown]
  - Pain [Unknown]
  - Loss of personal independence in daily activities [Unknown]
  - Nausea [Recovering/Resolving]
  - Somnolence [Not Recovered/Not Resolved]

NARRATIVE: CASE EVENT DATE: 20171228
